FAERS Safety Report 14067888 (Version 1)
Quarter: 2017Q4

REPORT INFORMATION
  Report Type: Spontaneous
  Country: US (occurrence: US)
  Receive Date: 20171009
  Receipt Date: 20171009
  Transmission Date: 20180321
  Serious: No
  Sender: FDA-Public Use
  Company Number: None

PATIENT
  Age: 94 Year
  Sex: Female
  Weight: 74.25 kg

DRUGS (21)
  1. FORTEO [Suspect]
     Active Substance: TERIPARATIDE
     Indication: OSTEOPOROSIS
     Route: 058
  2. AMLODIPINE [Concomitant]
     Active Substance: AMLODIPINE BESYLATE
  3. AMLODIPINE BESYLATE. [Concomitant]
     Active Substance: AMLODIPINE BESYLATE
  4. CALCIUM [Concomitant]
     Active Substance: CALCIUM
  5. MAGNESIUM [Concomitant]
     Active Substance: MAGNESIUM
  6. CLANIDINE [Concomitant]
  7. CICLOPIROX. [Concomitant]
     Active Substance: CICLOPIROX
  8. SIMVASTATIN. [Concomitant]
     Active Substance: SIMVASTATIN
  9. FORTEO [Concomitant]
     Active Substance: TERIPARATIDE
  10. LOW DOSE ASPIRIN [Concomitant]
     Active Substance: ASPIRIN
  11. RESTASIS [Concomitant]
     Active Substance: CYCLOSPORINE
  12. FOLIC ACID. [Concomitant]
     Active Substance: FOLIC ACID
  13. FOROSEMIDE [Concomitant]
  14. VITAMIN D [Concomitant]
     Active Substance: CHOLECALCIFEROL
  15. COQ10 [Concomitant]
     Active Substance: UBIDECARENONE
  16. LUBRICANT EYE DROPS [Concomitant]
     Active Substance: POLYETHYLENE GLYCOL 400\PROPYLENE GLYCOL
  17. FIBER GUMMIES [Concomitant]
  18. METHOTREXATE. [Concomitant]
     Active Substance: METHOTREXATE
  19. CELECOXIB. [Concomitant]
     Active Substance: CELECOXIB
  20. VITAMIN C [Concomitant]
     Active Substance: ASCORBIC ACID
  21. DIPHENHYDRAMINE. [Concomitant]
     Active Substance: DIPHENHYDRAMINE

REACTIONS (1)
  - Weight increased [None]
